FAERS Safety Report 7164378-0 (Version None)
Quarter: 2010Q4

REPORT INFORMATION
  Report Type: 
  Country: None (occurrence: None)
  Receive Date: 20101201
  Receipt Date: 20101115
  Transmission Date: 20110411
  Serious: Yes (Other)
  Sender: FDA-Public Use
  Company Number: 1000017445

PATIENT
  Age: 78 Year
  Sex: Male

DRUGS (3)
  1. CITALOPRAM HYDROBROMIDE [Suspect]
     Dosage: 20 MG (20 MG, 1 IN 1 D)
  2. METOPRONOL (METOPROLOL) (METOPROLOL) [Concomitant]
  3. HYDROCHLOROTHIAZIDE [Concomitant]

REACTIONS (3)
  - CONFUSIONAL STATE [None]
  - IMMOBILE [None]
  - SLEEP DISORDER [None]
